APPROVED DRUG PRODUCT: HYDROCODONE BITARTRATE, CHLORPHENIRAMINE MALEATE AND PSEUDOEPHEDRINE HYDROCHLORIDE
Active Ingredient: CHLORPHENIRAMINE MALEATE; HYDROCODONE BITARTRATE; PSEUDOEPHEDRINE HYDROCHLORIDE
Strength: 4MG/5ML;5MG/5ML;60MG/5ML
Dosage Form/Route: SOLUTION;ORAL
Application: A203838 | Product #001
Applicant: TRIS PHARMA INC
Approved: Nov 26, 2014 | RLD: No | RS: No | Type: DISCN